APPROVED DRUG PRODUCT: ELIGLUSTAT TARTRATE
Active Ingredient: ELIGLUSTAT TARTRATE
Strength: EQ 84MG BASE
Dosage Form/Route: CAPSULE;ORAL
Application: A212425 | Product #001
Applicant: APOTEX INC
Approved: Jul 10, 2024 | RLD: No | RS: No | Type: DISCN